FAERS Safety Report 15172050 (Version 1)
Quarter: 2018Q3

REPORT INFORMATION
  Report Type: Spontaneous
  Country: ES (occurrence: ES)
  Receive Date: 20180720
  Receipt Date: 20180720
  Transmission Date: 20181010
  Serious: Yes (Death, Hospitalization, Other)
  Sender: FDA-Public Use
  Company Number: ES-JNJFOC-20180725207

PATIENT
  Age: 59 Year
  Sex: Female

DRUGS (3)
  1. GABAPENTIN. [Interacting]
     Active Substance: GABAPENTIN
     Indication: PRODUCT USED FOR UNKNOWN INDICATION
     Route: 048
     Dates: start: 20180410, end: 20180410
  2. LORAZEPAM. [Interacting]
     Active Substance: LORAZEPAM
     Indication: PRODUCT USED FOR UNKNOWN INDICATION
     Route: 048
     Dates: start: 20180410, end: 20180410
  3. TRAMADOL HYDROCHLORIDE. [Suspect]
     Active Substance: TRAMADOL HYDROCHLORIDE
     Indication: PRODUCT USED FOR UNKNOWN INDICATION
     Route: 048
     Dates: start: 20180410, end: 20180410

REACTIONS (4)
  - Intentional overdose [Not Recovered/Not Resolved]
  - Suicide attempt [Fatal]
  - Drug interaction [Fatal]
  - Coma [Fatal]

NARRATIVE: CASE EVENT DATE: 20180410
